FAERS Safety Report 9680356 (Version 3)
Quarter: 2013Q4

REPORT INFORMATION
  Report Type: Spontaneous
  Country: TR (occurrence: TR)
  Receive Date: 20131111
  Receipt Date: 20131112
  Transmission Date: 20140711
  Serious: Yes (Hospitalization)
  Sender: FDA-Public Use
  Company Number: TR-AMGEN-TURSP2013050644

PATIENT
  Age: 30 Year
  Sex: Male

DRUGS (3)
  1. ENBREL [Suspect]
     Indication: RHEUMATOID ARTHRITIS
     Dosage: 50 MG, WEEKLY
     Route: 058
     Dates: start: 20130320, end: 201309
  2. SALAZOPYRIN [Concomitant]
     Indication: PAIN IN EXTREMITY
     Dosage: 2X2, DAILY
     Dates: start: 20130713
  3. VOLTAREN                           /00372302/ [Concomitant]
     Indication: PAIN IN EXTREMITY
     Dosage: 1X1, DAILY (IF PAIN INCREASED, DOSE CHANGE TO 2X1)
     Dates: start: 20130713

REACTIONS (2)
  - Bone deformity [Not Recovered/Not Resolved]
  - Abdominal pain upper [Not Recovered/Not Resolved]
